FAERS Safety Report 4530141-X (Version None)
Quarter: 2004Q4

REPORT INFORMATION
  Report Type: 
  Country: None (occurrence: None)
  Receive Date: 20041215
  Receipt Date: 20041206
  Transmission Date: 20050328
  Serious: Yes (Disabling, Other)
  Sender: FDA-Public Use
  Company Number: 2004106452

PATIENT
  Age: 35 Year
  Sex: Female
  Weight: 49.8957 kg

DRUGS (2)
  1. DEPO-PROVERA [Suspect]
     Indication: CONTRACEPTION
     Dosage: EVERY 3 MONTHS, 1ST INJ
     Dates: start: 20041101, end: 20041101
  2. FAMCICLOVIR (FAMCICLOVIR) [Concomitant]

REACTIONS (3)
  - HEADACHE [None]
  - HYPOMENORRHOEA [None]
  - MOOD ALTERED [None]
